FAERS Safety Report 24405506 (Version 1)
Quarter: 2024Q4

REPORT INFORMATION
  Report Type: Spontaneous
  Country: US (occurrence: US)
  Receive Date: 20241007
  Receipt Date: 20241007
  Transmission Date: 20250114
  Serious: No
  Sender: IPSEN
  Company Number: US-IPSEN Group, Research and Development-2024-19918

PATIENT
  Age: 55 Year
  Sex: Female

DRUGS (1)
  1. IQIRVO [Suspect]
     Active Substance: ELAFIBRANOR
     Indication: Primary biliary cholangitis
     Route: 048

REACTIONS (6)
  - Nausea [Unknown]
  - Abdominal distension [Unknown]
  - Weight increased [Unknown]
  - Frequent bowel movements [Unknown]
  - Constipation [Unknown]
  - Myalgia [Unknown]
